FAERS Safety Report 10601882 (Version 3)
Quarter: 2015Q1

REPORT INFORMATION
  Report Type: Spontaneous
  Country: US (occurrence: US)
  Receive Date: 20141124
  Receipt Date: 20150102
  Transmission Date: 20150720
  Serious: Yes (Hospitalization, Other)
  Sender: FDA-Public Use
  Company Number: US-PFIZER INC-2014318136

PATIENT
  Age: 71 Year
  Sex: Male
  Weight: 109 kg

DRUGS (20)
  1. HYDROCODONE [Concomitant]
     Active Substance: HYDROCODONE
     Indication: ARTHRALGIA
     Dosage: 7.5-750 UNK, AS NEEDED
  2. HYDROCODONE [Concomitant]
     Active Substance: HYDROCODONE
     Indication: BACK PAIN
  3. VYTORIN [Concomitant]
     Active Substance: EZETIMIBE\SIMVASTATIN
     Dosage: UNK (EZETIMIBE: 10, SIMVASTATIN: 40)
  4. ISOSORBIDE [Concomitant]
     Active Substance: ISOSORBIDE
  5. ASPIRIN ENTERIC COATED K.P. [Concomitant]
     Active Substance: ASPIRIN
     Dosage: 81 MG, UNK
  6. TIKOSYN [Suspect]
     Active Substance: DOFETILIDE
     Indication: ATRIAL FIBRILLATION
     Dosage: 500 ?G, TWICE A DAY
     Dates: start: 2007
  7. PROTONIX [Concomitant]
     Active Substance: PANTOPRAZOLE SODIUM
     Dosage: 40 MG, UNK
  8. ABILIFY [Concomitant]
     Active Substance: ARIPIPRAZOLE
     Dosage: 2 MG, 2X/DAY
  9. LASIX [Concomitant]
     Active Substance: FUROSEMIDE
     Dosage: 20 MG, 2X/DAY
  10. MAGNESIUM OXIDE. [Concomitant]
     Active Substance: MAGNESIUM OXIDE
  11. COUMADIN [Concomitant]
     Active Substance: WARFARIN SODIUM
     Dosage: 5 MG, UNK
  12. VITAMIN C [Concomitant]
     Active Substance: ASCORBIC ACID
     Dosage: 500 MG, UNK
  13. PLAVIX [Suspect]
     Active Substance: CLOPIDOGREL BISULFATE
     Indication: ANTICOAGULANT THERAPY
     Dosage: 75 MG, 1X/DAY
     Dates: start: 2009, end: 20141102
  14. CARVEDILOL. [Concomitant]
     Active Substance: CARVEDILOL
     Dosage: 6.25 MG, 2X/DAY
  15. METFORMIN [Concomitant]
     Active Substance: METFORMIN HYDROCHLORIDE
  16. ATIVAN [Concomitant]
     Active Substance: LORAZEPAM
     Dosage: 1 MG, UNK
  17. MESALAZINE [Concomitant]
     Active Substance: MESALAMINE
     Indication: COLITIS
     Dosage: 1.2 G, 2 TO 3 DAILY
  18. EFFEXOR XR [Concomitant]
     Active Substance: VENLAFAXINE HYDROCHLORIDE
     Dosage: UNK
  19. AMLODIPINE/BENAZEPRIL [Concomitant]
     Dosage: UNK (AMLODIPINE: 5, BENAZEPRIL: 10)
  20. ISOSORBIDE MN [Concomitant]
     Active Substance: ISOSORBIDE MONONITRATE

REACTIONS (11)
  - Anxiety [Unknown]
  - Cerebrovascular accident [Recovering/Resolving]
  - Gallbladder disorder [Unknown]
  - Prostatic disorder [Unknown]
  - Depression [Unknown]
  - Enterocolitis [Unknown]
  - Pain [Unknown]
  - Knee arthroplasty [Recovered/Resolved]
  - Pancreatitis [Recovered/Resolved]
  - Scar [Unknown]
  - Lipoma [Unknown]

NARRATIVE: CASE EVENT DATE: 2007
